FAERS Safety Report 18499303 (Version 3)
Quarter: 2021Q1

REPORT INFORMATION
  Report Type: Other
  Country: NL (occurrence: NL)
  Receive Date: 20201112
  Receipt Date: 20210108
  Transmission Date: 20210419
  Serious: Yes (Death, Life-Threatening, Hospitalization)
  Sender: FDA-Public Use
  Company Number: NL-ALSI-202000457

PATIENT
  Age: 37 Year
  Sex: Male
  Weight: 180 kg

DRUGS (1)
  1. OXYGEN. [Suspect]
     Active Substance: OXYGEN
     Indication: SURGICAL PRECONDITIONING
     Route: 055

REACTIONS (10)
  - Hyperventilation [Fatal]
  - Tachycardia [Fatal]
  - Toxicity to various agents [Fatal]
  - Seizure [Fatal]
  - Cardiac arrest [Fatal]
  - Epistaxis [Fatal]
  - Barotrauma [Fatal]
  - Pulmonary oedema [Fatal]
  - Haemoptysis [Fatal]
  - Respiratory arrest [Fatal]
